FAERS Safety Report 5666436-6 (Version None)
Quarter: 2008Q1

REPORT INFORMATION
  Report Type: 
  Country: None (occurrence: None)
  Receive Date: 20080314
  Receipt Date: 20071217
  Transmission Date: 20080703
  Serious: No
  Sender: FDA-Public Use
  Company Number: US-ABBOTT-07P-163-0430809-00

PATIENT
  Sex: Female
  Weight: 53.118 kg

DRUGS (5)
  1. HUMIRA [Suspect]
     Indication: CROHN'S DISEASE
     Route: 058
     Dates: start: 20070501, end: 20071218
  2. GEMFIBROZIL [Concomitant]
     Indication: BLOOD TRIGLYCERIDES
     Dosage: EVERY DAY
     Route: 048
  3. BUDESONIDE [Concomitant]
     Indication: CROHN'S DISEASE
     Route: 048
  4. ATORVASTATIN CALCIUM [Concomitant]
     Indication: BLOOD CHOLESTEROL
     Dosage: EVERY DAY
     Route: 048
  5. RISEDRONATE SODIUM [Concomitant]
     Indication: DRUG THERAPY
     Dosage: EVERY DAY
     Route: 048

REACTIONS (2)
  - HEADACHE [None]
  - NAUSEA [None]
